FAERS Safety Report 10234258 (Version 3)
Quarter: 2014Q3

REPORT INFORMATION
  Report Type: Spontaneous
  Country: US (occurrence: US)
  Receive Date: 20140612
  Receipt Date: 20140722
  Transmission Date: 20150326
  Serious: Yes (Other)
  Sender: FDA-Public Use
  Company Number: CHPA2014US007920

PATIENT
  Age: 53 Year
  Sex: Female

DRUGS (3)
  1. GAS-X EXTRA STRENGTH [Suspect]
     Active Substance: DIMETHICONE
     Indication: FLATULENCE
     Dosage: 2 DF, UNK
     Route: 048
     Dates: start: 20140606, end: 20140606
  2. GAS-X EXTRA STRENGTH [Suspect]
     Active Substance: DIMETHICONE
     Indication: OFF LABEL USE
  3. GAS-X EXTRA STRENGTH [Suspect]
     Active Substance: DIMETHICONE
     Indication: ABDOMINAL PAIN UPPER

REACTIONS (3)
  - Hypersensitivity [Recovered/Resolved]
  - Paraesthesia oral [Unknown]
  - Swelling face [Unknown]

NARRATIVE: CASE EVENT DATE: 20140606
